FAERS Safety Report 8294050-5 (Version None)
Quarter: 2012Q2

REPORT INFORMATION
  Report Type: 
  Country: None (occurrence: None)
  Receive Date: 20120418
  Receipt Date: 20120413
  Transmission Date: 20120825
  Serious: Yes (Hospitalization)
  Sender: FDA-Public Use
  Company Number: GB-PFIZER INC-2012092092

PATIENT
  Age: 46 Year
  Sex: Female

DRUGS (1)
  1. VARENICLINE TARTRATE [Suspect]
     Indication: SMOKING CESSATION THERAPY
     Route: 048
     Dates: start: 20120225, end: 20120313

REACTIONS (5)
  - MALAISE [None]
  - ERYTHEMA [None]
  - ACUTE GENERALISED EXANTHEMATOUS PUSTULOSIS [None]
  - MOBILITY DECREASED [None]
  - DERMATITIS EXFOLIATIVE [None]
